FAERS Safety Report 7733734-1 (Version None)
Quarter: 2011Q3

REPORT INFORMATION
  Report Type: 
  Country: None (occurrence: None)
  Receive Date: 20110902
  Receipt Date: 20110902
  Transmission Date: 20111222
  Serious: Yes (Disabling, Other)
  Sender: FDA-Public Use
  Company Number: None

PATIENT
  Age: 47 Year
  Sex: Female
  Weight: 88.4514 kg

DRUGS (6)
  1. DEXAMETHASONE [Suspect]
     Indication: NERVE INJURY
     Dosage: 3X A WEEK IONOPHERESIS BELOW L AXILLA
     Dates: start: 20110309
  2. DEXAMETHASONE [Suspect]
     Indication: NERVE INJURY
     Dosage: 3X A WEEK IONOPHERESIS BELOW L AXILLA
     Dates: start: 20110314
  3. DEXAMETHASONE [Suspect]
     Indication: NERVE INJURY
     Dosage: 3X A WEEK IONOPHERESIS BELOW L AXILLA
     Dates: start: 20110316
  4. DEXAMETHASONE [Suspect]
     Indication: NERVE INJURY
     Dosage: 3X A WEEK IONOPHERESIS BELOW L AXILLA
     Dates: start: 20110318
  5. DEXAMETHASONE [Suspect]
     Indication: NERVE INJURY
     Dosage: 3X A WEEK IONOPHERESIS BELOW L AXILLA
     Dates: start: 20110317
  6. DEXAMETHASONE [Suspect]
     Indication: NERVE INJURY
     Dosage: 3X A WEEK IONOPHERESIS BELOW L AXILLA
     Dates: start: 20110323

REACTIONS (2)
  - LYMPHADENOPATHY [None]
  - PRODUCT CONTAMINATION [None]
